FAERS Safety Report 13309035 (Version 1)
Quarter: 2017Q1

REPORT INFORMATION
  Report Type: Spontaneous
  Country: US (occurrence: US)
  Receive Date: 20170308
  Receipt Date: 20170308
  Transmission Date: 20170428
  Serious: Yes (Hospitalization)
  Sender: FDA-Public Use
  Company Number: None

PATIENT

DRUGS (2)
  1. CLOZAPINE  100MG TABLET [Suspect]
     Active Substance: CLOZAPINE
     Indication: SCHIZOPHRENIA
     Dosage: QHS
     Route: 048
     Dates: start: 201607, end: 201702
  2. CLOZAPINE 200MG TABLET [Suspect]
     Active Substance: CLOZAPINE
     Indication: SCHIZOPHRENIA
     Dosage: QAM
     Route: 048
     Dates: start: 201606, end: 201702

REACTIONS (3)
  - Pyrexia [None]
  - Heart rate increased [None]
  - Blood pressure fluctuation [None]

NARRATIVE: CASE EVENT DATE: 20170227
